FAERS Safety Report 6161547-3 (Version None)
Quarter: 2009Q2

REPORT INFORMATION
  Report Type: 
  Country: None (occurrence: None)
  Receive Date: 20090421
  Receipt Date: 20090410
  Transmission Date: 20091009
  Serious: Yes (Hospitalization, Other)
  Sender: FDA-Public Use
  Company Number: FR-NOVOPROD-285203

PATIENT
  Age: 85 Year
  Sex: Female

DRUGS (12)
  1. NOVORAPID [Suspect]
     Indication: TYPE 1 DIABETES MELLITUS
     Dosage: 29 IU, QD
     Route: 058
  2. NOVORAPID [Suspect]
     Dosage: BEFORE ADVERSE REACTION
     Dates: start: 20081109
  3. LANTUS [Suspect]
     Indication: TYPE 1 DIABETES MELLITUS
     Dosage: 16 IU IN MORNING, QD
     Route: 058
  4. FOSAMAX [Concomitant]
     Dosage: 1 DF, QD
     Route: 048
  5. HYDROCORTISONE [Concomitant]
     Route: 048
  6. CACIT D3 [Concomitant]
     Route: 048
  7. METHOTREXATE [Concomitant]
     Route: 048
  8. EBIXA [Concomitant]
     Dosage: 1 DF, QD
     Route: 048
  9. SPECIAFOLDINE [Concomitant]
     Route: 048
  10. LEVOTHYROX [Concomitant]
     Dosage: 100 UG, QD
     Route: 048
  11. VASTAREL [Concomitant]
     Dosage: 2 DF, QD
     Route: 048
  12. KARDEGIC                           /00002703/ [Concomitant]
     Dosage: 75 MG, QD
     Route: 048

REACTIONS (3)
  - HYPERTHERMIA [None]
  - HYPOGLYCAEMIC UNCONSCIOUSNESS [None]
  - VOMITING [None]
